FAERS Safety Report 16651406 (Version 1)
Quarter: 2019Q3

REPORT INFORMATION
  Report Type: Report from Study
  Country: US (occurrence: US)
  Receive Date: 20190731
  Receipt Date: 20190731
  Transmission Date: 20191004
  Serious: Yes (Death)
  Sender: FDA-Public Use
  Company Number: US-TAIHO ONCOLOGY  INC-EU-2019-02575

PATIENT
  Age: 61 Year
  Sex: Male
  Weight: 74.91 kg

DRUGS (6)
  1. LONSURF [Suspect]
     Active Substance: TIPIRACIL HYDROCHLORIDE\TRIFLURIDINE
     Indication: COLORECTAL CANCER
     Dosage: FORM STRENGTH: 15MG AND 20MG?CURRENT CYCLE UNKNOWN
     Route: 048
  2. FOLIC ACID. [Concomitant]
     Active Substance: FOLIC ACID
     Dosage: NI
  3. PROCHLORPERAZINE. [Concomitant]
     Active Substance: PROCHLORPERAZINE
     Dosage: NI
  4. INVOKANA [Concomitant]
     Active Substance: CANAGLIFLOZIN
     Dosage: NI
  5. COLACE [Concomitant]
     Active Substance: DOCUSATE SODIUM
     Dosage: NI
  6. IRON [Concomitant]
     Active Substance: IRON
     Dosage: NI

REACTIONS (1)
  - Death [Fatal]

NARRATIVE: CASE EVENT DATE: 20190610
